FAERS Safety Report 20659720 (Version 2)
Quarter: 2022Q2

REPORT INFORMATION
  Report Type: Spontaneous
  Country: US (occurrence: US)
  Receive Date: 20220331
  Receipt Date: 20220405
  Transmission Date: 20220721
  Serious: No
  Sender: FDA-Public Use
  Company Number: US-SA-SAC20220330000405

PATIENT
  Age: 22 Year
  Sex: Female

DRUGS (8)
  1. DUPIXENT [Suspect]
     Active Substance: DUPILUMAB
     Indication: Asthma
     Dosage: 200 MG, QOW
     Route: 058
  2. CELECOXIB [Concomitant]
     Active Substance: CELECOXIB
     Dosage: 10 MG TABLET
  3. FLOVENT HFA [Concomitant]
     Active Substance: FLUTICASONE PROPIONATE
     Dosage: 110 MCG AER W/ADAP
  4. ALBUTEROL SULFATE [Concomitant]
     Active Substance: ALBUTEROL SULFATE
  5. SUMATRIPTAN [Concomitant]
     Active Substance: SUMATRIPTAN
     Dosage: 20 MG, SPRAY
  6. IBUPROFEN [Concomitant]
     Active Substance: IBUPROFEN
     Dosage: 200 MG
  7. TRETINOIN [Concomitant]
     Active Substance: TRETINOIN
     Dosage: UNK
  8. ZYRTEC [Concomitant]
     Active Substance: CETIRIZINE HYDROCHLORIDE
     Dosage: UNK

REACTIONS (4)
  - COVID-19 [Unknown]
  - SARS-CoV-2 test positive [Unknown]
  - Asthma [Unknown]
  - Product dose omission issue [Unknown]
